FAERS Safety Report 21466733 (Version 1)
Quarter: 2022Q4

REPORT INFORMATION
  Report Type: Report from Study
  Country: MX (occurrence: MX)
  Receive Date: 20221017
  Receipt Date: 20221017
  Transmission Date: 20230113
  Serious: Yes (Death, Other)
  Sender: FDA-Public Use
  Company Number: MX-GILEAD-2022-0601514

PATIENT
  Age: 4 Decade
  Sex: Male

DRUGS (2)
  1. BICTEGRAVIR\EMTRICITABINE\TENOFOVIR ALAFENAMIDE [Suspect]
     Active Substance: BICTEGRAVIR\EMTRICITABINE\TENOFOVIR ALAFENAMIDE
     Indication: HIV infection
     Dosage: 1 DOSAGE FORM, UNK
     Route: 065
  2. ETHAMBUTOL\ISONIAZID\PYRAZINAMIDE\RIFAMYCIN [Concomitant]
     Active Substance: ETHAMBUTOL\ISONIAZID\PYRAZINAMIDE\RIFAMYCIN
     Indication: Tuberculosis

REACTIONS (4)
  - Death [Fatal]
  - Tuberculosis [Not Recovered/Not Resolved]
  - Hepatic function abnormal [Not Recovered/Not Resolved]
  - Transaminases increased [Not Recovered/Not Resolved]
